FAERS Safety Report 15492755 (Version 2)
Quarter: 2018Q4

REPORT INFORMATION
  Report Type: Spontaneous
  Country: US (occurrence: US)
  Receive Date: 20181012
  Receipt Date: 20181026
  Transmission Date: 20190205
  Serious: Yes (Hospitalization, Other)
  Sender: FDA-Public Use
  Company Number: US-COVIS PHARMA B.V.-2018COV03806

PATIENT

DRUGS (1)
  1. RILUTEK [Suspect]
     Active Substance: RILUZOLE
     Dosage: 50 MG, 2X/DAY

REACTIONS (1)
  - Disease progression [Unknown]
